FAERS Safety Report 5711665-6 (Version None)
Quarter: 2008Q2

REPORT INFORMATION
  Report Type: 
  Country: None (occurrence: None)
  Receive Date: 20080421
  Receipt Date: 20080410
  Transmission Date: 20081010
  Serious: Yes (Death, Hospitalization, Other)
  Sender: FDA-Public Use
  Company Number: FI-PFIZER INC-2008031964

PATIENT
  Age: 56 Year
  Sex: Male

DRUGS (4)
  1. SUTENT [Suspect]
     Indication: RENAL CELL CARCINOMA
     Dosage: DAILY DOSE:37.5MG-FREQ:DAILY
     Route: 048
     Dates: start: 20071214, end: 20080309
  2. TEGRETOL [Concomitant]
     Route: 048
  3. NEXIUM [Concomitant]
  4. ANTIEMETICS AND ANTINAUSEANTS [Concomitant]

REACTIONS (3)
  - ASCITES [None]
  - BLOOD CREATININE INCREASED [None]
  - GASTROINTESTINAL HAEMORRHAGE [None]
